FAERS Safety Report 11718656 (Version 1)
Quarter: 2015Q4

REPORT INFORMATION
  Report Type: Spontaneous
  Country: US (occurrence: None)
  Receive Date: 20151109
  Receipt Date: 20151109
  Transmission Date: 20160304
  Serious: Yes (Hospitalization, Disabling)
  Sender: FDA-Public Use
  Company Number: None

PATIENT
  Age: 39 Year
  Sex: Male
  Weight: 82.56 kg

DRUGS (1)
  1. AVELOX [Suspect]
     Active Substance: MOXIFLOXACIN HYDROCHLORIDE
     Indication: SINUSITIS
     Route: 048

REACTIONS (11)
  - Heart rate increased [None]
  - Chest pain [None]
  - Tremor [None]
  - Atrial fibrillation [None]
  - Back pain [None]
  - Visual impairment [None]
  - Feeling abnormal [None]
  - Skin discolouration [None]
  - Fatigue [None]
  - Inflammation [None]
  - Neck pain [None]

NARRATIVE: CASE EVENT DATE: 20091023
